FAERS Safety Report 6310818-6 (Version None)
Quarter: 2009Q3

REPORT INFORMATION
  Report Type: 
  Country: None (occurrence: None)
  Receive Date: 20090812
  Receipt Date: 20090727
  Transmission Date: 20100115
  Serious: Yes (Other)
  Sender: FDA-Public Use
  Company Number: MC200900264

PATIENT

DRUGS (3)
  1. CLEVIPREX [Suspect]
     Indication: BLOOD PRESSURE INCREASED
     Dates: start: 20090701, end: 20090701
  2. NIPRIDE (NITROPRUSSIDE SODUIM) [Concomitant]
  3. MILRINONE LACTATE [Concomitant]

REACTIONS (2)
  - OXYGEN SATURATION DECREASED [None]
  - VENOUS OXYGEN SATURATION DECREASED [None]
